FAERS Safety Report 10100473 (Version 4)
Quarter: 2016Q4

REPORT INFORMATION
  Report Type: Spontaneous
  Country: CH (occurrence: CH)
  Receive Date: 20140423
  Receipt Date: 20161215
  Transmission Date: 20170206
  Serious: Yes (Death, Other)
  Sender: FDA-Public Use
  Company Number: CH-CELGENEUS-151-21880-13042712

PATIENT

DRUGS (3)
  1. BENDAMUSTINE [Suspect]
     Active Substance: BENDAMUSTINE
     Indication: PLASMA CELL MYELOMA
     Route: 041
  2. REVLIMID [Suspect]
     Active Substance: LENALIDOMIDE
     Indication: PLASMA CELL MYELOMA
     Route: 048
  3. DEXAMETHASONE. [Suspect]
     Active Substance: DEXAMETHASONE
     Indication: PLASMA CELL MYELOMA
     Dosage: 40/20 MG
     Route: 048

REACTIONS (19)
  - Diarrhoea [Unknown]
  - Infection [Unknown]
  - Electrocardiogram repolarisation abnormality [Unknown]
  - Hypokalaemia [Unknown]
  - Thrombocytopenia [Unknown]
  - Hepatic enzyme increased [Unknown]
  - Hyperglycaemia [Unknown]
  - Vomiting [Unknown]
  - Fatigue [Unknown]
  - Plasma cell myeloma [Fatal]
  - Anaemia [Unknown]
  - Dermatitis bullous [Unknown]
  - Angiopathy [Unknown]
  - Erythema multiforme [Unknown]
  - Neutropenia [Unknown]
  - Rash [Unknown]
  - Leukopenia [Unknown]
  - Pneumonia [Unknown]
  - Nausea [Unknown]
